FAERS Safety Report 8159936-0 (Version None)
Quarter: 2012Q1

REPORT INFORMATION
  Report Type: 
  Country: None (occurrence: None)
  Receive Date: 20120103
  Receipt Date: 20111122
  Transmission Date: 20120608
  Serious: No
  Sender: FDA-Public Use
  Company Number: AE-2011-003901

PATIENT
  Age: 59 Year
  Sex: Female
  Weight: 99.3377 kg

DRUGS (3)
  1. RIBAVIRIN [Concomitant]
  2. INCIVEK [Suspect]
     Dosage: 2250 MG (750 MG, Q 7-9 HOURS), ORAL
     Route: 048
     Dates: start: 20111014
  3. PEGASYS [Concomitant]

REACTIONS (1)
  - BLOOD COUNT ABNORMAL [None]
